FAERS Safety Report 18033872 (Version 1)
Quarter: 2020Q3

REPORT INFORMATION
  Report Type: Report from Study
  Country: RO (occurrence: RO)
  Receive Date: 20200716
  Receipt Date: 20200716
  Transmission Date: 20201103
  Serious: Yes (Other)
  Sender: FDA-Public Use
  Company Number: RO-AMGEN-ROUNI2020113040

PATIENT
  Age: 59 Year
  Sex: Male
  Weight: 71 kg

DRUGS (2)
  1. DOXICILINA [DOXYCYCLINE] [Concomitant]
     Active Substance: DOXYCYCLINE
     Dosage: 100 MILLIGRAM
     Route: 048
     Dates: start: 20191212, end: 20191222
  2. PANITUMUMAB [Suspect]
     Active Substance: PANITUMUMAB
     Indication: COLORECTAL CANCER METASTATIC
     Dosage: 426 MILLIGRAM
     Route: 042
     Dates: start: 20190902

REACTIONS (1)
  - Dermatitis [Recovered/Resolved]

NARRATIVE: CASE EVENT DATE: 20191212
